FAERS Safety Report 8490395-4 (Version None)
Quarter: 2012Q3

REPORT INFORMATION
  Report Type: 
  Country: None (occurrence: None)
  Receive Date: 20120705
  Receipt Date: 20120627
  Transmission Date: 20120928
  Serious: Yes (Hospitalization, Other)
  Sender: FDA-Public Use
  Company Number: GB-PFIZER INC-2012160439

PATIENT
  Age: 89 Year
  Sex: Female

DRUGS (5)
  1. DOXAZOSIN [Concomitant]
     Dosage: UNK
  2. MOXONIDINE [Concomitant]
     Dosage: UNK
  3. CO-AMILOFRUSE [Concomitant]
     Dosage: UNK
  4. IBUPROFEN [Suspect]
     Indication: PRODUCT USED FOR UNKNOWN INDICATION
     Route: 048
     Dates: start: 20120501, end: 20120508
  5. AMLODIPINE [Concomitant]
     Dosage: UNK

REACTIONS (4)
  - ANAEMIA [None]
  - HAEMOGLOBIN DECREASED [None]
  - GASTRIC ULCER HAEMORRHAGE [None]
  - MELAENA [None]
